FAERS Safety Report 15585351 (Version 1)
Quarter: 2018Q4

REPORT INFORMATION
  Report Type: Spontaneous
  Country: US (occurrence: US)
  Receive Date: 20181105
  Receipt Date: 20181105
  Transmission Date: 20190205
  Serious: No
  Sender: FDA-Public Use
  Company Number: US-MYLANLABS-2018M1079114

PATIENT
  Sex: Female
  Weight: 85 kg

DRUGS (1)
  1. ESTRADIOL TRANSDERMAL SYSTEM [Suspect]
     Active Substance: ESTRADIOL
     Indication: MENOPAUSAL SYMPTOMS
     Dosage: 1 MG, QD
     Route: 062
     Dates: start: 201301

REACTIONS (3)
  - Product dose omission [Not Recovered/Not Resolved]
  - Hot flush [Not Recovered/Not Resolved]
  - Product adhesion issue [Not Recovered/Not Resolved]
